FAERS Safety Report 9847840 (Version 2)
Quarter: 2014Q2

REPORT INFORMATION
  Report Type: Spontaneous
  Country: CH (occurrence: CH)
  Receive Date: 20140128
  Receipt Date: 20140411
  Transmission Date: 20141212
  Serious: Yes (Life-Threatening, Hospitalization)
  Sender: FDA-Public Use
  Company Number: CH-BRISTOL-MYERS SQUIBB COMPANY-20049607

PATIENT
  Age: 23 Year
  Sex: Male

DRUGS (3)
  1. ABILIFY TABS [Suspect]
     Indication: SCHIZOPHRENIA, PARANOID TYPE
  2. ABILIFY TABS [Suspect]
     Indication: DEPRESSION
  3. CITALOPRAM [Concomitant]
     Dosage: IN MORNING.?ONGOING

REACTIONS (3)
  - Appendicitis [Recovering/Resolving]
  - Gastrointestinal necrosis [Recovering/Resolving]
  - Intestinal perforation [Recovering/Resolving]
